FAERS Safety Report 16086568 (Version 1)
Quarter: 2019Q1

REPORT INFORMATION
  Report Type: Spontaneous
  Country: US (occurrence: US)
  Receive Date: 20190318
  Receipt Date: 20190318
  Transmission Date: 20190418
  Serious: No
  Sender: FDA-Public Use
  Company Number: US-SCILEX PHARMACEUTICALS INC.-2018SCX00008

PATIENT
  Age: 67 Year
  Sex: Male
  Weight: 67.12 kg

DRUGS (5)
  1. CRESTOR [Concomitant]
     Active Substance: ROSUVASTATIN CALCIUM
  2. ZTLIDO [Suspect]
     Active Substance: LIDOCAINE
     Indication: BURSITIS
     Dosage: 1 DOSAGE UNITS, 2X/DAY
     Route: 061
     Dates: start: 20181130, end: 20181202
  3. ASPIRIN. [Concomitant]
     Active Substance: ASPIRIN
  4. ZTLIDO [Suspect]
     Active Substance: LIDOCAINE
     Indication: ARTHRALGIA
  5. CARVEDILOL. [Concomitant]
     Active Substance: CARVEDILOL
     Dosage: 25 MG, 2X/DAY

REACTIONS (6)
  - Dry mouth [Recovering/Resolving]
  - Dysgeusia [Not Recovered/Not Resolved]
  - Dizziness [Recovering/Resolving]
  - Asthenia [Recovering/Resolving]
  - Fatigue [Recovering/Resolving]
  - Nausea [Recovering/Resolving]

NARRATIVE: CASE EVENT DATE: 20181130
